FAERS Safety Report 5117696-1 (Version None)
Quarter: 2006Q3

REPORT INFORMATION
  Report Type: 
  Country: None (occurrence: None)
  Receive Date: 20060926
  Receipt Date: 20060904
  Transmission Date: 20061208
  Serious: Yes (Hospitalization)
  Sender: FDA-Public Use
  Company Number: GB200607003960

PATIENT
  Age: 48 Year
  Sex: Female
  Weight: 63.9 kg

DRUGS (7)
  1. GEMCITABINE [Suspect]
     Indication: BREAST CANCER
     Dosage: 3200 MG
     Dates: start: 20060404, end: 20060516
  2. PACLITAXEL [Suspect]
     Indication: BREAST CANCER
     Dosage: 2700 MG
     Dates: start: 20060404, end: 20060516
  3. EPIRUBICIN [Suspect]
     Indication: BREAST CANCER
     Dosage: 144 MG
     Dates: start: 20060111, end: 20060315
  4. CYCLOPHOSPHAMIDE [Suspect]
     Indication: BREAST CANCER
     Dosage: 960 MG
     Dates: start: 20060111, end: 20060315
  5. GRANISETRON (GRANISETRON) [Concomitant]
  6. DEXAMETHASONE TAB [Concomitant]
  7. GEMCITABINE [Concomitant]

REACTIONS (8)
  - ARTHRITIS REACTIVE [None]
  - BONE PAIN [None]
  - BREAST CANCER [None]
  - CONSTIPATION [None]
  - DIARRHOEA [None]
  - DISCOMFORT [None]
  - METASTASES TO BONE [None]
  - STAPHYLOCOCCAL INFECTION [None]
